FAERS Safety Report 9776029 (Version 2)
Quarter: 2014Q1

REPORT INFORMATION
  Report Type: Spontaneous
  Country: US (occurrence: US)
  Receive Date: 20131220
  Receipt Date: 20140128
  Transmission Date: 20141002
  Serious: Yes (Other)
  Sender: FDA-Public Use
  Company Number: US-PFIZER INC-2013361673

PATIENT
  Sex: Female

DRUGS (1)
  1. ZYVOX [Suspect]
     Dosage: UNK
     Dates: start: 2013, end: 2013

REACTIONS (2)
  - Multiple sclerosis [Not Recovered/Not Resolved]
  - Paraesthesia [Recovering/Resolving]
